FAERS Safety Report 9592236 (Version 2)
Quarter: 2013Q4

REPORT INFORMATION
  Report Type: Report from Study
  Country: GB (occurrence: GB)
  Receive Date: 20131004
  Receipt Date: 20131106
  Transmission Date: 20140711
  Serious: Yes (Hospitalization, Other)
  Sender: FDA-Public Use
  Company Number: GB-ROCHE-1284489

PATIENT
  Sex: Male

DRUGS (14)
  1. RANIBIZUMAB [Suspect]
     Indication: PRODUCT USED FOR UNKNOWN INDICATION
     Route: 050
     Dates: start: 20110602
  2. RANIBIZUMAB [Suspect]
     Route: 050
     Dates: start: 20120404
  3. BEZAFIBRATE [Concomitant]
     Route: 065
     Dates: start: 2012
  4. COLESTYRAMIN [Concomitant]
     Route: 065
     Dates: start: 2012
  5. LANSOPRAZOLE [Concomitant]
     Route: 065
     Dates: start: 2012
  6. RAMIPRIL [Concomitant]
     Route: 065
     Dates: start: 2012
  7. BISOPROLOL [Concomitant]
     Route: 065
     Dates: start: 2012
  8. CLOPIDOGREL [Concomitant]
     Route: 065
     Dates: start: 2012
  9. ROSUVASTATIN [Concomitant]
     Route: 065
     Dates: start: 201203
  10. SIMVASTATIN [Concomitant]
     Route: 065
     Dates: start: 201204
  11. ATORVASTATIN [Concomitant]
     Route: 065
     Dates: start: 201204
  12. PRAVASTATIN [Concomitant]
     Route: 065
     Dates: start: 201204
  13. FENOFIBRATE [Concomitant]
     Route: 065
     Dates: start: 201204
  14. ASPIRIN [Concomitant]
     Route: 065
     Dates: start: 2012

REACTIONS (2)
  - Coronary artery disease [Recovering/Resolving]
  - Myocardial ischaemia [Recovering/Resolving]
